FAERS Safety Report 22200116 (Version 1)
Quarter: 2023Q2

REPORT INFORMATION
  Report Type: Spontaneous
  Country: HR (occurrence: None)
  Receive Date: 20230412
  Receipt Date: 20230412
  Transmission Date: 20230722
  Serious: Yes (Other)
  Sender: FDA-Public Use
  Company Number: HR-ROCHE-3328937

PATIENT
  Age: 14 Year
  Sex: Female
  Weight: 48 kg

DRUGS (1)
  1. RIVOTRIL [Suspect]
     Active Substance: CLONAZEPAM
     Indication: Completed suicide
     Dosage: 5.5 MILLIGRAM IN 1 DAY, INGESTION
     Route: 048
     Dates: start: 20230201, end: 20230201

REACTIONS (4)
  - Syncope [Unknown]
  - Ataxia [Unknown]
  - Suicide attempt [Unknown]
  - Somnolence [Unknown]

NARRATIVE: CASE EVENT DATE: 20230201
